FAERS Safety Report 19421214 (Version 1)
Quarter: 2021Q2

REPORT INFORMATION
  Report Type: Spontaneous
  Country: IT (occurrence: IT)
  Receive Date: 20210615
  Receipt Date: 20210615
  Transmission Date: 20210717
  Serious: Yes (Other)
  Sender: FDA-Public Use
  Company Number: IT-PFIZER INC-2021663032

PATIENT
  Age: 70 Year
  Sex: Male

DRUGS (3)
  1. CARDIOASPIRIN [Concomitant]
     Active Substance: ASPIRIN
     Dosage: UNK
  2. SERTRALINE [Concomitant]
     Active Substance: SERTRALINE HYDROCHLORIDE
     Dosage: UNK
  3. LYRICA [Suspect]
     Active Substance: PREGABALIN
     Dosage: 25 MG  (IN THE MORNING AND IN THE EVENING)

REACTIONS (11)
  - Diarrhoea [Unknown]
  - Dry mouth [Unknown]
  - Sleep disorder [Unknown]
  - Paraesthesia [Unknown]
  - Seizure [Unknown]
  - Respiratory disorder [Unknown]
  - Somnolence [Unknown]
  - Muscle spasms [Unknown]
  - Hot flush [Unknown]
  - Eye inflammation [Unknown]
  - Depressed mood [Unknown]
